FAERS Safety Report 12639428 (Version 1)
Quarter: 2016Q3

REPORT INFORMATION
  Report Type: Spontaneous
  Country: US (occurrence: None)
  Receive Date: 20160809
  Receipt Date: 20160809
  Transmission Date: 20161109
  Serious: No
  Sender: FDA-Public Use
  Company Number: None

PATIENT
  Age: 66 Year
  Sex: Female
  Weight: 40.82 kg

DRUGS (6)
  1. AVAPRO [Concomitant]
     Active Substance: IRBESARTAN
  2. PROPANOLOL [Concomitant]
     Active Substance: PROPRANOLOL HYDROCHLORIDE
  3. PRIMIDONE. [Concomitant]
     Active Substance: PRIMIDONE
  4. STIOLTO RESPIMAT [Suspect]
     Active Substance: OLODATEROL HYDROCHLORIDE\TIOTROPIUM BROMIDE MONOHYDRATE
     Indication: CHRONIC OBSTRUCTIVE PULMONARY DISEASE
     Dosage: IN THE MORNING
     Route: 055
     Dates: start: 20160616, end: 20160620
  5. MULTI VITAMIN [Concomitant]
     Active Substance: VITAMINS
  6. CALCIUM PLUS D [Concomitant]
     Active Substance: CALCIUM\VITAMIN D

REACTIONS (2)
  - Pulmonary pain [None]
  - Chest discomfort [None]
